FAERS Safety Report 7529220-4 (Version None)
Quarter: 2011Q2

REPORT INFORMATION
  Report Type: 
  Country: None (occurrence: None)
  Receive Date: 20110607
  Receipt Date: 20050714
  Transmission Date: 20111010
  Serious: Yes (Death)
  Sender: FDA-Public Use
  Company Number: PHHO2005CA10934

PATIENT
  Sex: Male

DRUGS (4)
  1. LORAZEPAM [Concomitant]
  2. CLOZARIL [Suspect]
     Indication: SCHIZOPHRENIA
     Dosage: 500 MG, QD
     Route: 048
     Dates: start: 19990201
  3. VENLAFAXINE [Concomitant]
  4. TOPIRAMATE [Concomitant]

REACTIONS (2)
  - DEATH [None]
  - HEAT ILLNESS [None]
